FAERS Safety Report 4511634-8 (Version None)
Quarter: 2004Q4

REPORT INFORMATION
  Report Type: 
  Country: None (occurrence: None)
  Receive Date: 20041129
  Receipt Date: 20041021
  Transmission Date: 20050328
  Serious: Yes (Other)
  Sender: FDA-Public Use
  Company Number: US-BRISTOL-MYERS SQUIBB COMPANY-12739769

PATIENT
  Age: 64 Year
  Sex: Female
  Weight: 77 kg

DRUGS (7)
  1. ABILIFY [Suspect]
     Indication: SCHIZOAFFECTIVE DISORDER
     Dosage: INITIATED 30-SEP-04, 5 MG/DAY; INC TO 10 MG/DAY ON 10-OCT-04; INC TO 15 MG/DAY ON 19-OCT-2004.
     Route: 048
     Dates: start: 20040930
  2. TRILEPTAL [Concomitant]
  3. SYNTHROID [Concomitant]
  4. COGENTIN [Concomitant]
  5. MOBAN [Concomitant]
  6. NORVASC [Concomitant]
  7. HYDRALAZINE [Concomitant]

REACTIONS (1)
  - HYPERTENSION [None]
